FAERS Safety Report 9044069 (Version 1)
Quarter: 2013Q1

REPORT INFORMATION
  Report Type: Spontaneous
  Country: US (occurrence: US)
  Receive Date: 20130130
  Receipt Date: 20130130
  Transmission Date: 20140127
  Serious: No
  Sender: FDA-Public Use
  Company Number: US-B.I. PHARMACEUTICALS,INC./RIDGEFIELD-2013-BI-02256BP

PATIENT
  Age: 47 Year
  Sex: Male

DRUGS (4)
  1. SPIRIVA [Suspect]
  2. ADVAIR [Concomitant]
  3. ALBUTEROL [Concomitant]
  4. FLOMAX [Concomitant]

REACTIONS (3)
  - Pneumonia lipoid [Unknown]
  - Weight decreased [Unknown]
  - Urinary retention [Unknown]
